FAERS Safety Report 8985159 (Version 1)
Quarter: 2012Q4

REPORT INFORMATION
  Report Type: 
  Country: US (occurrence: US)
  Receive Date: 20121226
  Receipt Date: 20121226
  Transmission Date: 20130627
  Serious: No
  Sender: FDA-Public Use
  Company Number: US-PFIZER INC-2012326796

PATIENT
  Sex: Male

DRUGS (5)
  1. CHANTIX [Suspect]
     Indication: SMOKING CESSATION THERAPY
     Dosage: UNK
  2. CHANTIX [Suspect]
     Dosage: 1 mg, 1x/day
     Dates: start: 20121217, end: 201212
  3. CHANTIX [Suspect]
     Dosage: 1 mg, UNK
     Dates: start: 201212
  4. SEROQUEL [Concomitant]
     Dosage: UNK
  5. TRAZODONE [Concomitant]
     Dosage: UNK

REACTIONS (5)
  - Mood altered [Unknown]
  - Abnormal behaviour [Unknown]
  - Depression [Unknown]
  - Hostility [Unknown]
  - Anger [Unknown]
